FAERS Safety Report 9356694 (Version 3)
Quarter: 2017Q1

REPORT INFORMATION
  Report Type: Spontaneous
  Country: US (occurrence: US)
  Receive Date: 20130619
  Receipt Date: 20170208
  Transmission Date: 20170429
  Serious: Yes (Hospitalization)
  Sender: FDA-Public Use
  Company Number: US-009507513-1306USA006699

PATIENT
  Age: 3 Year
  Sex: Male
  Weight: 13.83 kg

DRUGS (4)
  1. DULERA [Suspect]
     Active Substance: FORMOTEROL FUMARATE DIHYDRATE\MOMETASONE FUROATE
     Indication: ASTHMA
     Dosage: 2 PUFFS / TWICE DAILY, INHALATION ESTIMATED 1.5 YEARS
     Route: 055
     Dates: start: 2011
  2. ZYRTEC [Concomitant]
     Active Substance: CETIRIZINE HYDROCHLORIDE
  3. SINGULAIR [Concomitant]
     Active Substance: MONTELUKAST SODIUM
     Route: 048
  4. PROAIR HFA [Concomitant]
     Active Substance: ALBUTEROL SULFATE

REACTIONS (5)
  - Mental status changes [Recovering/Resolving]
  - Body height abnormal [Recovering/Resolving]
  - Vomiting [Recovering/Resolving]
  - Adrenal suppression [Recovering/Resolving]
  - Product packaging quantity issue [Unknown]

NARRATIVE: CASE EVENT DATE: 20130604
